FAERS Safety Report 17006305 (Version 1)
Quarter: 2019Q4

REPORT INFORMATION
  Report Type: Spontaneous
  Country: US (occurrence: US)
  Receive Date: 20190926
  Receipt Date: 20190926
  Transmission Date: 20200122
  Serious: Yes (Life-Threatening, Hospitalization, Other)
  Sender: FDA-Public Use
  Company Number: None

PATIENT
  Age: 59 Year
  Sex: Female
  Weight: 76.7 kg

DRUGS (8)
  1. MAGNESIUM CITRATE. [Concomitant]
     Active Substance: MAGNESIUM CITRATE
  2. L-ARGININE [Concomitant]
     Active Substance: ARGININE
  3. LITHIUM. [Suspect]
     Active Substance: LITHIUM
     Indication: BIPOLAR I DISORDER
     Dosage: ?          QUANTITY:8MG PER/5ML-2TSP;?
     Route: 048
     Dates: start: 20160226
  4. LATUDA [Concomitant]
     Active Substance: LURASIDONE HYDROCHLORIDE
  5. RISPERIDONE. [Concomitant]
     Active Substance: RISPERIDONE
  6. LITHIUM. [Suspect]
     Active Substance: LITHIUM
     Indication: CONCUSSION
     Dosage: ?          QUANTITY:8MG PER/5ML-2TSP;?
     Route: 048
     Dates: start: 20160226
  7. PROTANDIN [Concomitant]
  8. LIQUID LITHIUM [Concomitant]

REACTIONS (2)
  - Mallory-Weiss syndrome [None]
  - Choking [None]

NARRATIVE: CASE EVENT DATE: 20160330
